FAERS Safety Report 9663556 (Version 2)
Quarter: 2013Q4

REPORT INFORMATION
  Report Type: Spontaneous
  Country: US (occurrence: US)
  Receive Date: 20131101
  Receipt Date: 20131115
  Transmission Date: 20140711
  Serious: No
  Sender: FDA-Public Use
  Company Number: US-PFIZER INC-2013309116

PATIENT
  Age: 46 Year
  Sex: Female
  Weight: 81.63 kg

DRUGS (1)
  1. EFFEXOR XR [Suspect]
     Indication: DEPRESSION
     Dosage: UNK

REACTIONS (1)
  - Fibromyalgia [Not Recovered/Not Resolved]
